FAERS Safety Report 24435865 (Version 1)
Quarter: 2024Q4

REPORT INFORMATION
  Report Type: Spontaneous
  Country: US (occurrence: US)
  Receive Date: 20241015
  Receipt Date: 20241015
  Transmission Date: 20250114
  Serious: Yes (Other)
  Sender: REGENERON
  Company Number: US-REGENERON PHARMACEUTICALS, INC.-2024-137391

PATIENT
  Sex: Female

DRUGS (2)
  1. EYLEA [Suspect]
     Active Substance: AFLIBERCEPT
     Indication: Retinal vein occlusion
     Dosage: UNK, FORMULATION: UNKNOWN
     Route: 031
  2. EYLEA [Suspect]
     Active Substance: AFLIBERCEPT
     Indication: Macular oedema

REACTIONS (4)
  - Angina pectoris [Unknown]
  - Arthralgia [Unknown]
  - Pharyngeal swelling [Unknown]
  - Rash [Unknown]
